FAERS Safety Report 8529684-3 (Version None)
Quarter: 2012Q2

REPORT INFORMATION
  Report Type: 
  Country: None (occurrence: None)
  Receive Date: 20120410
  Receipt Date: 20111206
  Transmission Date: 20120825
  Serious: Yes (Life-Threatening, Other)
  Sender: FDA-Public Use
  Company Number: 20110868

PATIENT
  Age: 37 Year
  Sex: Female
  Weight: 67.586 kg

DRUGS (4)
  1. ACETAMINOPHEN [Concomitant]
  2. FERRLECIT INJECTION NOS [Suspect]
     Indication: IRON DEFICIENCY ANAEMIA
     Dosage: 250 MG X 1 PER ONCE
     Dates: start: 20111117
  3. METHYLPREDNISOLONE [Concomitant]
  4. DEXFERRUM (IRON DEXTRAN INJECTION, USP) 50 MG/ML FE+++ [Suspect]
     Indication: IRON DEFICIENCY ANAEMIA
     Dosage: 1ST TEST DOSE OVER 10
     Dates: start: 20111117

REACTIONS (11)
  - HYPERHIDROSIS [None]
  - SWELLING [None]
  - NAUSEA [None]
  - PRURITUS [None]
  - ARTHRALGIA [None]
  - DYSPNOEA [None]
  - ASTHENIA [None]
  - BACK PAIN [None]
  - DIZZINESS [None]
  - VOMITING [None]
  - RASH [None]
